FAERS Safety Report 8366558-5 (Version None)
Quarter: 2012Q2

REPORT INFORMATION
  Report Type: 
  Country: None (occurrence: None)
  Receive Date: 20120516
  Receipt Date: 20120516
  Transmission Date: 20120825
  Serious: Yes (Disabling)
  Sender: FDA-Public Use
  Company Number: None

PATIENT
  Sex: Male
  Weight: 70.3075 kg

DRUGS (2)
  1. CIALIS [Suspect]
     Indication: ERECTILE DYSFUNCTION
     Dosage: 5MG. 1 PER DAY (ONCE TAKEN)
     Dates: start: 20110410
  2. CIALIS [Suspect]
     Indication: PROSTATIC DISORDER
     Dosage: 5MG. 1 PER DAY (ONCE TAKEN)
     Dates: start: 20110410

REACTIONS (8)
  - DIZZINESS [None]
  - GAIT DISTURBANCE [None]
  - MIGRAINE [None]
  - VISION BLURRED [None]
  - FEELING ABNORMAL [None]
  - ERECTILE DYSFUNCTION [None]
  - RHINORRHOEA [None]
  - DRY MOUTH [None]
